FAERS Safety Report 21942385 (Version 1)
Quarter: 2023Q1

REPORT INFORMATION
  Report Type: Spontaneous
  Country: RU (occurrence: RU)
  Receive Date: 20230202
  Receipt Date: 20230202
  Transmission Date: 20230417
  Serious: No
  Sender: FDA-Public Use
  Company Number: RU-EXELIXIS-CABO-22057489

PATIENT
  Age: 49 Year
  Sex: Male

DRUGS (2)
  1. CABOMETYX [Suspect]
     Active Substance: CABOZANTINIB S-MALATE
     Indication: Metastatic renal cell carcinoma
     Dosage: 60 MG
     Dates: start: 202103, end: 202105
  2. CABOMETYX [Suspect]
     Active Substance: CABOZANTINIB S-MALATE
     Dosage: 40 MG
     Dates: start: 202108

REACTIONS (4)
  - Gastric ulcer [Unknown]
  - Peptic ulcer [Recovering/Resolving]
  - Alanine aminotransferase increased [Recovered/Resolved]
  - Aspartate aminotransferase increased [Recovered/Resolved]

NARRATIVE: CASE EVENT DATE: 20210501
